FAERS Safety Report 13302890 (Version 2)
Quarter: 2017Q1

REPORT INFORMATION
  Report Type: Report from Study
  Country: BR (occurrence: BR)
  Receive Date: 20170307
  Receipt Date: 20170315
  Transmission Date: 20170428
  Serious: Yes (Hospitalization)
  Sender: FDA-Public Use
  Company Number: BR-BAYER-2017-021509

PATIENT
  Age: 37 Year
  Sex: Female

DRUGS (4)
  1. PREDNISONE. [Concomitant]
     Active Substance: PREDNISONE
     Indication: AUTOIMMUNE HEPATITIS
     Dosage: 5 MG, QD
     Route: 048
     Dates: start: 20170124
  2. NEXAVAR [Suspect]
     Active Substance: SORAFENIB
     Indication: HEPATIC CANCER
     Dosage: 800 MG, QD
     Route: 048
     Dates: start: 201611
  3. NEXAVAR [Suspect]
     Active Substance: SORAFENIB
     Indication: HEPATIC CANCER
     Dosage: 800 MG, QD
     Route: 048
     Dates: start: 20170123, end: 20170212
  4. AZATHIOPRINE. [Concomitant]
     Active Substance: AZATHIOPRINE
     Indication: AUTOIMMUNE HEPATITIS
     Dosage: 50 MG, QD
     Route: 048

REACTIONS (10)
  - Oral disorder [Recovered/Resolved]
  - Genital candidiasis [Recovered/Resolved]
  - Hepatic pain [Recovering/Resolving]
  - Asthenia [Not Recovered/Not Resolved]
  - Skin lesion [Not Recovered/Not Resolved]
  - Tachycardia [Not Recovered/Not Resolved]
  - Generalised erythema [Not Recovered/Not Resolved]
  - Herpes zoster [None]
  - Suicidal ideation [None]
  - Oral candidiasis [Recovered/Resolved]

NARRATIVE: CASE EVENT DATE: 2017
